FAERS Safety Report 25361345 (Version 2)
Quarter: 2025Q3

REPORT INFORMATION
  Report Type: Report from Study
  Country: US (occurrence: US)
  Receive Date: 20250527
  Receipt Date: 20250715
  Transmission Date: 20251020
  Serious: Yes (Hospitalization, Other)
  Sender: ALEXION PHARMACEUTICALS
  Company Number: US-AstraZeneca-CH-00876844A

PATIENT
  Age: 40 Year
  Sex: Male
  Weight: 89.796 kg

DRUGS (1)
  1. OSIMERTINIB [Suspect]
     Active Substance: OSIMERTINIB
     Dosage: 80 MILLIGRAM, QD
     Dates: start: 20250505

REACTIONS (14)
  - Bone lesion [Recovered/Resolved]
  - Thrombosis [Recovered/Resolved]
  - Cellulitis [Unknown]
  - Deep vein thrombosis [Unknown]
  - Cough [Unknown]
  - Hip fracture [Unknown]
  - Metastatic neoplasm [Unknown]
  - Neuroendocrine carcinoma [Unknown]
  - Nausea [Unknown]
  - Decreased appetite [Unknown]
  - Leukocytosis [Unknown]
  - Anaemia [Unknown]
  - Thrombocytopenia [Unknown]
  - Metastases to central nervous system [Unknown]

NARRATIVE: CASE EVENT DATE: 20250515
